FAERS Safety Report 15308167 (Version 1)
Quarter: 2018Q3

REPORT INFORMATION
  Report Type: Spontaneous
  Country: IT (occurrence: IT)
  Receive Date: 20180822
  Receipt Date: 20180822
  Transmission Date: 20181010
  Serious: Yes (Life-Threatening)
  Sender: FDA-Public Use
  Company Number: PHHY2018IT077476

PATIENT
  Age: 81 Year
  Sex: Male
  Weight: 80 kg

DRUGS (1)
  1. ALLOPURINOL. [Suspect]
     Active Substance: ALLOPURINOL
     Indication: HYPERURICAEMIA
     Dosage: 300 MG, QD
     Route: 048
     Dates: start: 20180610, end: 20180627

REACTIONS (3)
  - White blood cell count increased [Not Recovered/Not Resolved]
  - Rash maculo-papular [Not Recovered/Not Resolved]
  - Eosinophil count increased [Not Recovered/Not Resolved]

NARRATIVE: CASE EVENT DATE: 20180625
